FAERS Safety Report 4282171-3 (Version None)
Quarter: 2004Q1

REPORT INFORMATION
  Report Type: 
  Country: None (occurrence: None)
  Receive Date: 20040112
  Receipt Date: 20031208
  Transmission Date: 20041129
  Serious: No
  Sender: FDA-Public Use
  Company Number: PHEH2003US11160

PATIENT
  Age: 24 Year
  Sex: Female

DRUGS (3)
  1. ELIDEL [Suspect]
     Indication: ACNE
     Dosage: BID, TOPICAL
     Route: 061
     Dates: end: 20031205
  2. ETHANOL(ETHANOL) [Suspect]
     Dosage: ORAL
     Route: 048
     Dates: start: 20031204
  3. SYNTHROID [Concomitant]

REACTIONS (1)
  - ERYTHEMA [None]
